FAERS Safety Report 9097649 (Version 1)
Quarter: 2013Q1

REPORT INFORMATION
  Report Type: Spontaneous
  Country: FR (occurrence: FR)
  Receive Date: 20130212
  Receipt Date: 20130212
  Transmission Date: 20140127
  Serious: Yes (Hospitalization, Other)
  Sender: FDA-Public Use
  Company Number: FR-COVIDIEN/TYCO HEALTHCARE/MALLINCKRODT-T201300352

PATIENT
  Age: 8 Month
  Sex: Male
  Weight: 6.4 kg

DRUGS (1)
  1. FENTANYL TRANSDERMAL SYSTEM [Suspect]
     Dosage: UNK

REACTIONS (11)
  - Accidental poisoning [Recovered/Resolved]
  - Unresponsive to stimuli [Recovered/Resolved]
  - Hypoxia [Recovered/Resolved]
  - Hypoventilation [Recovered/Resolved]
  - Accidental exposure to product by child [Recovered/Resolved]
  - Hypertonia [Recovered/Resolved]
  - Abdominal rigidity [Recovered/Resolved]
  - Somnolence [Unknown]
  - Miosis [Recovered/Resolved]
  - Lethargy [Recovered/Resolved]
  - Fall [Unknown]
